FAERS Safety Report 7592583-8 (Version None)
Quarter: 2011Q3

REPORT INFORMATION
  Report Type: 
  Country: None (occurrence: None)
  Receive Date: 20110706
  Receipt Date: 20110630
  Transmission Date: 20111222
  Serious: Yes (Hospitalization)
  Sender: FDA-Public Use
  Company Number: JP-SANOFI-AVENTIS-2011SA041878

PATIENT
  Age: 68 Year
  Sex: Male
  Weight: 65 kg

DRUGS (14)
  1. NORVASC [Concomitant]
     Route: 048
     Dates: start: 20090616
  2. WARFARIN SODIUM [Concomitant]
     Route: 048
     Dates: start: 20090612, end: 20090615
  3. URALYT [Concomitant]
     Route: 048
     Dates: start: 20090614
  4. AVAPRO [Concomitant]
     Route: 048
     Dates: start: 20090612
  5. WARFARIN SODIUM [Concomitant]
     Route: 048
     Dates: start: 20090619
  6. CRESTOR [Concomitant]
     Route: 048
     Dates: start: 20090612
  7. ASPIRIN [Concomitant]
     Indication: ANGINA UNSTABLE
     Route: 048
  8. LANSOPRAZOLE [Concomitant]
     Route: 048
     Dates: start: 20090612
  9. NITRODERM [Concomitant]
     Indication: ANGINA UNSTABLE
     Route: 062
     Dates: start: 20090612
  10. PLAVIX [Suspect]
     Indication: ANGINA UNSTABLE
     Route: 048
     Dates: start: 20090612, end: 20090612
  11. ETODOLAC [Concomitant]
     Route: 048
     Dates: start: 20090614
  12. PLAVIX [Suspect]
     Route: 048
     Dates: start: 20090613, end: 20090713
  13. WARFARIN SODIUM [Concomitant]
     Route: 048
     Dates: start: 20090616, end: 20090618
  14. ALLOPURINOL [Concomitant]
     Route: 048
     Dates: start: 20090614

REACTIONS (1)
  - ATRIAL FIBRILLATION [None]
